FAERS Safety Report 4746661-9 (Version None)
Quarter: 2005Q3

REPORT INFORMATION
  Report Type: 
  Country: None (occurrence: None)
  Receive Date: 20050817
  Receipt Date: 20050805
  Transmission Date: 20060218
  Serious: Yes (Other)
  Sender: FDA-Public Use
  Company Number: PHBS2005CH11377

PATIENT
  Age: 95 Year
  Sex: Male

DRUGS (6)
  1. NITRODERM [Suspect]
     Dosage: 1 PATCH  QD
     Route: 062
  2. CANDESARTAN [Suspect]
     Indication: HYPERTENSION
     Dosage: 4 MG/DAY
  3. CLOPIDOGREL BISULFATE [Suspect]
     Indication: CARDIAC DISORDER
     Dates: start: 20050201, end: 20050301
  4. ASPIRIN [Concomitant]
     Indication: CARDIAC DISORDER
     Dosage: 100 MG/DAY
  5. DANCOR [Concomitant]
     Indication: HYPERTENSION
     Dosage: 10 MG /DAY
  6. TORSEMIDE [Concomitant]
     Indication: HYPERTENSION
     Dosage: 5 MG/DAY

REACTIONS (3)
  - AGEUSIA [None]
  - ATRIOVENTRICULAR BLOCK COMPLETE [None]
  - MYOCARDIAL INFARCTION [None]
